FAERS Safety Report 8251780-9 (Version None)
Quarter: 2012Q1

REPORT INFORMATION
  Report Type: 
  Country: None (occurrence: None)
  Receive Date: 20120321
  Receipt Date: 20100216
  Transmission Date: 20120608
  Serious: Yes (Other)
  Sender: FDA-Public Use
  Company Number: PHEH2010US02564

PATIENT
  Age: 50 Year
  Sex: Female

DRUGS (1)
  1. VALTURNA [Suspect]
     Dosage: 150ALIS/160VAL, QD, ORAL
     Route: 048

REACTIONS (3)
  - PHARYNGEAL OEDEMA [None]
  - BLOOD PRESSURE INCREASED [None]
  - LOCAL SWELLING [None]
